FAERS Safety Report 5756625-4 (Version None)
Quarter: 2008Q2

REPORT INFORMATION
  Report Type: 
  Country: None (occurrence: None)
  Receive Date: 20080603
  Receipt Date: 20080529
  Transmission Date: 20081010
  Serious: Yes (Death, Other)
  Sender: FDA-Public Use
  Company Number: US-BRISTOL-MYERS SQUIBB COMPANY-14037105

PATIENT
  Age: 49 Year
  Sex: Male

DRUGS (8)
  1. ERBITUX [Suspect]
     Indication: HEAD AND NECK CANCER
     Dosage: LOADING DOSE 852MG,INITIATED:14NOV07.
     Route: 042
     Dates: start: 20071227, end: 20071227
  2. FENTANYL TRANSDERMAL SYSTEM [Interacting]
  3. RADIATION THERAPY [Interacting]
     Indication: HEAD AND NECK CANCER
  4. BENADRYL [Concomitant]
     Indication: PREMEDICATION
     Route: 042
  5. TYLENOL [Concomitant]
     Indication: PREMEDICATION
     Route: 048
  6. FENTANYL TRANSDERMAL SYSTEM [Concomitant]
     Indication: PAIN
  7. VICODIN ES [Concomitant]
     Indication: PAIN
     Dosage: Q 4-6HRS.
  8. ZOFRAN [Concomitant]
     Indication: NAUSEA

REACTIONS (3)
  - DRUG INTERACTION [None]
  - OVERDOSE [None]
  - RESPIRATORY ARREST [None]
